FAERS Safety Report 8977088 (Version 1)
Quarter: 2012Q4

REPORT INFORMATION
  Report Type: Report from Study
  Country: US (occurrence: US)
  Receive Date: 20121220
  Receipt Date: 20121220
  Transmission Date: 20130627
  Serious: Yes (Hospitalization)
  Sender: FDA-Public Use
  Company Number: US-TEVA-376057USA

PATIENT
  Age: 9 Year
  Sex: Male
  Weight: 33.3 kg

DRUGS (6)
  1. TRISENOX [Suspect]
     Indication: ACUTE PROMYELOCYTIC LEUKAEMIA
  2. CYTARABINE [Suspect]
     Indication: ACUTE PROMYELOCYTIC LEUKAEMIA
     Dosage: 30 mg on day 1
     Route: 037
     Dates: start: 20121019
  3. CYTARABINE [Suspect]
     Dosage: 13740 Milligram Daily; 1000 mg/m2/dose oners 3 hours days 1-3
     Route: 042
  4. TRETINOIN [Suspect]
     Indication: ACUTE PROMYELOCYTIC LEUKAEMIA
     Dosage: 840 Milligram Daily; 12.5 mg/m2/dose on days 1-14
     Route: 048
     Dates: start: 20111014
  5. IDARUBICIN [Suspect]
     Indication: ACUTE PROMYELOCYTIC LEUKAEMIA
  6. MITOXANTRONE [Suspect]
     Indication: ACUTE PROMYELOCYTIC LEUKAEMIA
     Dosage: 10 mg/m2/dose over 15-30 mins-days 3 and 4
     Route: 040

REACTIONS (1)
  - Febrile neutropenia [Recovered/Resolved]
